FAERS Safety Report 11112521 (Version 1)
Quarter: 2015Q2

REPORT INFORMATION
  Report Type: Spontaneous
  Country: US (occurrence: None)
  Receive Date: 20150513
  Receipt Date: 20150513
  Transmission Date: 20150821
  Serious: Yes (Hospitalization, Other)
  Sender: FDA-Public Use
  Company Number: None

PATIENT
  Age: 47 Year
  Sex: Male
  Weight: 91.7 kg

DRUGS (1)
  1. CANAGLIFLOZIN [Suspect]
     Active Substance: CANAGLIFLOZIN
     Indication: TYPE 2 DIABETES MELLITUS
     Dosage: 1 TABLET, BID, ORAL
     Route: 048
     Dates: start: 20150510

REACTIONS (6)
  - Scrotal abscess [None]
  - Staphylococcal infection [None]
  - Bacteraemia [None]
  - Post procedural infection [None]
  - Glycosuria [None]
  - Device related infection [None]

NARRATIVE: CASE EVENT DATE: 20150510
